FAERS Safety Report 8236909-0 (Version None)
Quarter: 2012Q1

REPORT INFORMATION
  Report Type: 
  Country: None (occurrence: None)
  Receive Date: 20120327
  Receipt Date: 20120323
  Transmission Date: 20120608
  Serious: Yes (Other)
  Sender: FDA-Public Use
  Company Number: RU-BAYER-2012-012734

PATIENT
  Age: 54 Year
  Sex: Female

DRUGS (2)
  1. AVELOX [Suspect]
     Indication: INFECTION PROPHYLAXIS
     Dosage: 400 MG, ONCE
     Route: 048
     Dates: start: 20120206, end: 20120206
  2. CIPROFLOXACIN [Concomitant]
     Dosage: 1 DF, QD
     Route: 048
     Dates: start: 20120204, end: 20120205

REACTIONS (8)
  - PRURITUS GENITAL [None]
  - COUGH [None]
  - RASH [None]
  - THROAT IRRITATION [None]
  - ANGIOEDEMA [None]
  - PERINEAL PAIN [None]
  - FACE OEDEMA [None]
  - PRURITUS [None]
